FAERS Safety Report 8898731 (Version 2)
Quarter: 2013Q1

REPORT INFORMATION
  Report Type: Spontaneous
  Country: US (occurrence: US)
  Receive Date: 20121109
  Receipt Date: 20130205
  Transmission Date: 20140127
  Serious: Yes (Hospitalization, Other)
  Sender: FDA-Public Use
  Company Number: US-009507513-1210USA014456

PATIENT
  Age: 54 Year
  Sex: Male
  Weight: 74.83 kg

DRUGS (2)
  1. MIRALAX [Suspect]
     Indication: CONSTIPATION
     Dosage: 17 G, ONCE
     Route: 048
     Dates: start: 20121011, end: 20121011
  2. PERCOCET [Concomitant]
     Indication: BACK PAIN
     Dosage: 17 G, UNK
     Dates: start: 20121011

REACTIONS (1)
  - Convulsion [Recovered/Resolved]
